FAERS Safety Report 22132941 (Version 1)
Quarter: 2023Q1

REPORT INFORMATION
  Report Type: Report from Study
  Country: CH (occurrence: CH)
  Receive Date: 20230323
  Receipt Date: 20230323
  Transmission Date: 20230418
  Serious: Yes (Death)
  Sender: FDA-Public Use
  Company Number: CH-ABBVIE-4245897

PATIENT
  Age: 79 Year
  Sex: Female
  Weight: 83 kg

DRUGS (48)
  1. VENETOCLAX [Suspect]
     Active Substance: VENETOCLAX
     Indication: Acute myeloid leukaemia
     Route: 048
     Dates: start: 20220323, end: 20220407
  2. VENETOCLAX [Suspect]
     Active Substance: VENETOCLAX
     Indication: Acute myeloid leukaemia
     Dosage: START DATE 2022
     Route: 048
  3. HEPARIN [Concomitant]
     Active Substance: HEPARIN SODIUM
     Indication: Product used for unknown indication
     Dosage: WHEN NEEDED
     Route: 042
     Dates: start: 20220319, end: 20220324
  4. Codeini phosphas [Concomitant]
     Indication: Product used for unknown indication
     Route: 048
     Dates: start: 20220314, end: 20220324
  5. Codeini phosphas [Concomitant]
     Indication: Product used for unknown indication
     Dosage: WHEN NEEDED
     Route: 048
     Dates: start: 20220314, end: 20220324
  6. HYDROXYUREA [Concomitant]
     Active Substance: HYDROXYUREA
     Indication: Product used for unknown indication
     Dates: start: 20220318, end: 20220320
  7. TOCILIZUMAB [Concomitant]
     Active Substance: TOCILIZUMAB
     Indication: Product used for unknown indication
     Route: 042
     Dates: start: 20220318, end: 20220318
  8. TIOTROPIUM [Concomitant]
     Active Substance: TIOTROPIUM
     Indication: Product used for unknown indication
     Dosage: WHEN NEEDED
     Route: 055
  9. POSACONAZOLE [Concomitant]
     Active Substance: POSACONAZOLE
     Indication: Product used for unknown indication
     Dates: start: 20220315, end: 20220315
  10. OLANZAPINE [Concomitant]
     Active Substance: OLANZAPINE
     Indication: Product used for unknown indication
     Dosage: WHEN NEEDED
     Route: 048
     Dates: start: 20220327, end: 20220327
  11. ENOXAPARIN [Concomitant]
     Active Substance: ENOXAPARIN
     Indication: Product used for unknown indication
     Route: 058
     Dates: start: 20220325
  12. NEBIVOLOL [Concomitant]
     Active Substance: NEBIVOLOL
     Indication: Product used for unknown indication
     Route: 048
  13. ESOMEPRAZOLE [Concomitant]
     Active Substance: ESOMEPRAZOLE
     Indication: Product used for unknown indication
     Route: 048
     Dates: start: 20220313
  14. AMPHOTERICIN B [Concomitant]
     Active Substance: AMPHOTERICIN B
     Indication: Product used for unknown indication
     Route: 042
     Dates: start: 20220319, end: 20220323
  15. AMPHOTERICIN B [Concomitant]
     Active Substance: AMPHOTERICIN B
     Indication: Product used for unknown indication
     Route: 042
     Dates: start: 20220326, end: 20220330
  16. METAMIZOL SODIUM [Concomitant]
     Active Substance: METAMIZOL SODIUM
     Indication: Product used for unknown indication
     Dosage: WHEN NEEDED
     Dates: start: 20220314, end: 20220315
  17. POTASSIUM CHLORIDE [Concomitant]
     Active Substance: POTASSIUM CHLORIDE
     Indication: Product used for unknown indication
     Route: 048
     Dates: start: 20220315, end: 20220319
  18. IPRATROPIUM BROMIDE [Concomitant]
     Active Substance: IPRATROPIUM BROMIDE
     Indication: Product used for unknown indication
     Route: 055
     Dates: start: 20220313
  19. CEFEPIME HYDROCHLORIDE [Concomitant]
     Active Substance: CEFEPIME HYDROCHLORIDE
     Indication: Product used for unknown indication
     Route: 042
     Dates: start: 20220315, end: 20220326
  20. AZACITIDINE [Suspect]
     Active Substance: AZACITIDINE
     Indication: Acute myeloid leukaemia
     Route: 065
     Dates: start: 20220326, end: 20220327
  21. AZACITIDINE [Suspect]
     Active Substance: AZACITIDINE
     Indication: Acute myeloid leukaemia
     Route: 065
     Dates: start: 20220323, end: 20220324
  22. AZACITIDINE [Suspect]
     Active Substance: AZACITIDINE
     Indication: Acute myeloid leukaemia
     Route: 065
     Dates: start: 20220325, end: 20220325
  23. PARACETAMOL UPSA [Concomitant]
     Indication: Product used for unknown indication
     Dosage: WHEN NEEDED
     Route: 048
     Dates: start: 20220314
  24. VORICONAZOLUM [Concomitant]
     Indication: Product used for unknown indication
     Route: 048
     Dates: start: 20220319, end: 20220325
  25. VORICONAZOLUM [Concomitant]
     Indication: Product used for unknown indication
     Route: 042
     Dates: start: 20220315, end: 20220318
  26. ALLOPURINOL [Concomitant]
     Active Substance: ALLOPURINOL
     Indication: Product used for unknown indication
     Dates: start: 20220323
  27. DEXAMETHASONE [Concomitant]
     Active Substance: DEXAMETHASONE
     Indication: Product used for unknown indication
     Dates: start: 20220317
  28. OXYCODONE [Concomitant]
     Active Substance: OXYCODONE
     Indication: Product used for unknown indication
     Dosage: WHEN NEEDED
     Route: 048
     Dates: start: 20220315, end: 20220320
  29. ACETYLCYSTEINUM [Concomitant]
     Indication: Product used for unknown indication
     Route: 048
     Dates: start: 20220319
  30. ACETYLCYSTEINUM [Concomitant]
     Indication: Product used for unknown indication
     Route: 048
     Dates: start: 20220313, end: 20220314
  31. HUMAN RED BLOOD CELL [Concomitant]
     Active Substance: HUMAN RED BLOOD CELL
     Indication: Product used for unknown indication
     Dates: start: 20220316
  32. AMPHOTERICIN B [Concomitant]
     Active Substance: AMPHOTERICIN B
     Indication: Product used for unknown indication
     Dosage: LIPOSOMAL AMPHOTERICIN B
     Route: 042
     Dates: start: 20220319, end: 20220323
  33. AMPHOTERICIN B [Concomitant]
     Active Substance: AMPHOTERICIN B
     Indication: Product used for unknown indication
     Dosage: LIPOSOMAL AMPHOTERICIN B
     Route: 042
     Dates: start: 20220326, end: 20220330
  34. SALMETEROL [Concomitant]
     Active Substance: SALMETEROL
     Indication: Product used for unknown indication
     Dosage: WHEN NEEDED
     Route: 055
  35. REMDESIVIR [Concomitant]
     Active Substance: REMDESIVIR
     Indication: Product used for unknown indication
     Route: 042
     Dates: start: 20220315, end: 20220319
  36. NATRII PICOSULFAS MONOHYDRICUM [Concomitant]
     Indication: Product used for unknown indication
     Route: 048
     Dates: start: 20220314, end: 20220327
  37. ANASTROZOLE [Concomitant]
     Active Substance: ANASTROZOLE
     Indication: Product used for unknown indication
     Route: 048
     Dates: start: 20220313
  38. ONDANSETRON [Concomitant]
     Active Substance: ONDANSETRON
     Indication: Product used for unknown indication
     Dosage: FREQUENCY: WHEN NEEDED
     Dates: start: 20220323, end: 20220327
  39. VALERIAN [Concomitant]
     Active Substance: VALERIAN
     Indication: Product used for unknown indication
     Route: 048
     Dates: start: 20220313, end: 20220330
  40. VALERIAN [Concomitant]
     Active Substance: VALERIAN
     Indication: Product used for unknown indication
     Route: 048
     Dates: start: 20220313, end: 20220330
  41. VALERIAN [Concomitant]
     Active Substance: VALERIAN
     Indication: Product used for unknown indication
     Dosage: WHEN NEEDED
     Route: 048
     Dates: start: 20220313, end: 20220330
  42. FUROSEMIDE [Concomitant]
     Active Substance: FUROSEMIDE
     Indication: Product used for unknown indication
     Route: 042
     Dates: start: 20220315, end: 20220323
  43. FUROSEMIDE [Concomitant]
     Active Substance: FUROSEMIDE
     Indication: Product used for unknown indication
     Dosage: WHEN NEEDED
     Route: 042
     Dates: start: 20220315, end: 20220323
  44. LERCANIDIPINE HYDROCHLORIDE [Concomitant]
     Active Substance: LERCANIDIPINE HYDROCHLORIDE
     Indication: Product used for unknown indication
     Route: 048
     Dates: end: 20220314
  45. POLYETHYLENE GLYCOL 4000 [Concomitant]
     Active Substance: POLYETHYLENE GLYCOL 4000
     Indication: Product used for unknown indication
     Dosage: MACROGOLUM 4000
     Route: 048
     Dates: start: 20220314, end: 20220320
  46. RASBURICASE [Concomitant]
     Active Substance: RASBURICASE
     Indication: Product used for unknown indication
     Dosage: WHEN NEEDED
     Dates: start: 20220318
  47. RASBURICASE [Concomitant]
     Active Substance: RASBURICASE
     Indication: Product used for unknown indication
     Route: 042
     Dates: start: 20220318, end: 20220318
  48. SALBUTAMOL-RATIOPHARM N [Concomitant]
     Indication: Product used for unknown indication
     Route: 055
     Dates: start: 20220313

REACTIONS (3)
  - Death [Fatal]
  - Thrombocytopenia [Recovered/Resolved]
  - Neutropenia [Recovered/Resolved]

NARRATIVE: CASE EVENT DATE: 20220323
